FAERS Safety Report 7399653-8 (Version None)
Quarter: 2011Q2

REPORT INFORMATION
  Report Type: 
  Country: None (occurrence: None)
  Receive Date: 20110407
  Receipt Date: 20100810
  Transmission Date: 20111010
  Serious: No
  Sender: FDA-Public Use
  Company Number: US-KINGPHARMUSA00001-K201001019

PATIENT
  Sex: Female
  Weight: 68.027 kg

DRUGS (2)
  1. SKELAXIN [Suspect]
     Dosage: 400 MG, Q4 TO 5 HRS
     Route: 048
     Dates: start: 20100701
  2. SKELAXIN [Suspect]
     Indication: MUSCLE SPASMS
     Dosage: 800 MG, SINGLE
     Route: 048
     Dates: start: 20100201, end: 20100101

REACTIONS (2)
  - SOMNOLENCE [None]
  - DRUG INEFFECTIVE [None]
